FAERS Safety Report 17629233 (Version 4)
Quarter: 2020Q3

REPORT INFORMATION
  Report Type: Report from Study
  Country: US (occurrence: US)
  Receive Date: 20200406
  Receipt Date: 20200715
  Transmission Date: 20201102
  Serious: No
  Sender: FDA-Public Use
  Company Number: US-BIOVITRUM-2020US1598

PATIENT
  Age: 41 Year
  Sex: Female

DRUGS (2)
  1. KINERET [Suspect]
     Active Substance: ANAKINRA
     Route: 058
     Dates: start: 20200315
  2. KINERET [Suspect]
     Active Substance: ANAKINRA
     Indication: PRODUCT USED FOR UNKNOWN INDICATION
     Route: 058
     Dates: start: 20200304

REACTIONS (15)
  - Condition aggravated [Unknown]
  - Injection site discomfort [Unknown]
  - Pruritus [Recovered/Resolved]
  - Coronavirus infection [Unknown]
  - Nasal congestion [Not Recovered/Not Resolved]
  - Pain [Unknown]
  - Pyrexia [Unknown]
  - Chills [Unknown]
  - Dyspepsia [Unknown]
  - Injection site pain [Unknown]
  - Paraesthesia [Recovered/Resolved]
  - Oropharyngeal pain [Unknown]
  - Influenza like illness [Recovered/Resolved]
  - Off label use [Unknown]
  - Throat irritation [Unknown]

NARRATIVE: CASE EVENT DATE: 20200304
